FAERS Safety Report 12315060 (Version 3)
Quarter: 2018Q2

REPORT INFORMATION
  Report Type: Spontaneous
  Country: US (occurrence: US)
  Receive Date: 20160428
  Receipt Date: 20180417
  Transmission Date: 20180711
  Serious: No
  Sender: FDA-Public Use
  Company Number: US-PFIZER INC-2016235877

PATIENT
  Age: 52 Year
  Sex: Male
  Weight: 105.67 kg

DRUGS (3)
  1. EFFIENT [Concomitant]
     Active Substance: PRASUGREL HYDROCHLORIDE
     Indication: MYOCARDIAL INFARCTION
     Dosage: 10 MG, 1X/DAY
     Dates: start: 201503
  2. VIAGRA [Suspect]
     Active Substance: SILDENAFIL CITRATE
     Indication: PERFORMANCE FEAR
     Dosage: 50 MG, ONCE DAILY
     Route: 048
     Dates: start: 201606
  3. VIAGRA [Suspect]
     Active Substance: SILDENAFIL CITRATE
     Indication: HEADACHE

REACTIONS (1)
  - Drug effective for unapproved indication [Unknown]

NARRATIVE: CASE EVENT DATE: 201606
